FAERS Safety Report 20969746 (Version 1)
Quarter: 2022Q2

REPORT INFORMATION
  Report Type: Other
  Country: JP (occurrence: None)
  Receive Date: 20220616
  Receipt Date: 20220616
  Transmission Date: 20220721
  Serious: Yes (Other)
  Sender: FDA-Public Use
  Company Number: JP-ROCHE-3115702

PATIENT
  Age: 10 Week
  Weight: 0.47 kg

DRUGS (1)
  1. BEVACIZUMAB [Suspect]
     Active Substance: BEVACIZUMAB
     Indication: Retinopathy of prematurity
     Route: 050

REACTIONS (3)
  - Retinal detachment [Recovered/Resolved]
  - Off label use [Unknown]
  - Off label use [Unknown]
